FAERS Safety Report 11357633 (Version 1)
Quarter: 2015Q3

REPORT INFORMATION
  Report Type: Spontaneous
  Country: US (occurrence: US)
  Receive Date: 20150803
  Receipt Date: 20150803
  Transmission Date: 20151125
  Serious: No
  Sender: FDA-Public Use
  Company Number: US-ELI_LILLY_AND_COMPANY-US201407005076

PATIENT
  Sex: Female

DRUGS (2)
  1. ZYPREXA [Suspect]
     Active Substance: OLANZAPINE
     Indication: ANXIETY
     Dosage: 10 MG, UNKNOWN
     Route: 065
     Dates: start: 20140622
  2. ZYPREXA [Suspect]
     Active Substance: OLANZAPINE
     Indication: SLEEP DISORDER
     Dosage: 1 DF, UNKNOWN
     Route: 065
     Dates: start: 201401, end: 201401

REACTIONS (11)
  - Drug withdrawal syndrome [Unknown]
  - Increased appetite [Unknown]
  - Dysgeusia [Unknown]
  - Anxiety [Unknown]
  - Weight increased [Unknown]
  - Blood glucose increased [Unknown]
  - Anxiety [Unknown]
  - Fear [Unknown]
  - Dyskinesia [Unknown]
  - Dyskinesia [Unknown]
  - Off label use [Recovered/Resolved]

NARRATIVE: CASE EVENT DATE: 201407
